FAERS Safety Report 6999857-X (Version None)
Quarter: 2010Q3

REPORT INFORMATION
  Report Type: 
  Country: None (occurrence: None)
  Receive Date: 20100920
  Receipt Date: 20071211
  Transmission Date: 20110219
  Serious: Yes (Other)
  Sender: FDA-Public Use
  Company Number: US-ASTRAZENECA-2006UW26746

PATIENT
  Age: 60 Year
  Sex: Female
  Weight: 69.4 kg

DRUGS (6)
  1. SEROQUEL [Suspect]
     Indication: DEPRESSION
     Route: 048
     Dates: start: 20000101, end: 20060101
  2. SEROQUEL [Suspect]
     Dosage: 25-200 MG
     Route: 048
     Dates: start: 20020208
  3. DOXEPIN HCL [Concomitant]
     Dosage: 50-300 MG
     Route: 048
     Dates: start: 20001121
  4. PREMARIN [Concomitant]
     Dosage: 0.625-1.25 MG
     Route: 048
     Dates: start: 19900123
  5. VALSARTAN [Concomitant]
     Route: 048
     Dates: start: 20020117
  6. WELLBUTRIN [Concomitant]
     Dates: start: 20020117

REACTIONS (3)
  - DIABETES MELLITUS [None]
  - TARDIVE DYSKINESIA [None]
  - TYPE 2 DIABETES MELLITUS [None]
